FAERS Safety Report 16635763 (Version 3)
Quarter: 2019Q3

REPORT INFORMATION
  Report Type: Report from Study
  Country: AU (occurrence: AU)
  Receive Date: 20190726
  Receipt Date: 20190910
  Transmission Date: 20191004
  Serious: Yes (Death, Other)
  Sender: FDA-Public Use
  Company Number: AU-BAYER-2019-135311

PATIENT

DRUGS (1)
  1. STIVARGA [Suspect]
     Active Substance: REGORAFENIB
     Dosage: UNK

REACTIONS (4)
  - Sepsis [Fatal]
  - Infection [None]
  - Performance status decreased [None]
  - Malaise [None]
